FAERS Safety Report 6445315-0 (Version None)
Quarter: 2009Q4

REPORT INFORMATION
  Report Type: 
  Country: None (occurrence: None)
  Receive Date: 20091116
  Receipt Date: 20091103
  Transmission Date: 20100525
  Serious: No
  Sender: FDA-Public Use
  Company Number: 001189

PATIENT
  Sex: Male

DRUGS (2)
  1. LACOSAMIDE [Suspect]
     Indication: CONVULSION
     Dosage: 50 MG, 6 DOSES ORAL
     Route: 048
     Dates: start: 20090612
  2. KEPPRA [Concomitant]

REACTIONS (3)
  - COLD SWEAT [None]
  - INCORRECT DOSE ADMINISTERED [None]
  - SYNCOPE [None]
